FAERS Safety Report 9196583 (Version 1)
Quarter: 2013Q1

REPORT INFORMATION
  Report Type: Spontaneous
  Country: IT (occurrence: IT)
  Receive Date: 20130328
  Receipt Date: 20130328
  Transmission Date: 20140127
  Serious: Yes (Other)
  Sender: FDA-Public Use
  Company Number: IT-MYLANLABS-2013S1006018

PATIENT
  Age: 57 Year
  Sex: Female
  Weight: 70 kg

DRUGS (3)
  1. PACLITAXEL MYLAN [Suspect]
     Indication: BREAST CANCER METASTATIC
     Dosage: CYCLIC
     Route: 042
     Dates: start: 20130304, end: 20130311
  2. SOLDESAM [Concomitant]
     Indication: PREMEDICATION
     Dates: start: 20130311, end: 20130311
  3. TRIMETON /00072502/ [Concomitant]
     Indication: PREMEDICATION
     Dates: start: 20130311, end: 20130311

REACTIONS (5)
  - Tachycardia [Recovered/Resolved]
  - Presyncope [Recovered/Resolved]
  - Face oedema [Recovered/Resolved]
  - Erythema [Recovered/Resolved]
  - Blood pressure decreased [Recovered/Resolved]
